FAERS Safety Report 15853087 (Version 1)
Quarter: 2019Q1

REPORT INFORMATION
  Report Type: Spontaneous
  Country: US (occurrence: US)
  Receive Date: 20190119
  Receipt Date: 20190119
  Transmission Date: 20190417
  Serious: Yes (Death)
  Sender: FDA-Public Use
  Company Number: None

PATIENT
  Age: 78 Year
  Sex: Male
  Weight: 81 kg

DRUGS (1)
  1. GADOLINIUM DYE CONTRAST [Suspect]
     Active Substance: GADOLINIUM
     Indication: NEOPLASM MALIGNANT
     Dosage: ?          OTHER FREQUENCY:TWICE A MONTH;?
     Route: 042

REACTIONS (2)
  - Cognitive disorder [None]
  - Toxicity to various agents [None]

NARRATIVE: CASE EVENT DATE: 20170101
